FAERS Safety Report 15817751 (Version 1)
Quarter: 2019Q1

REPORT INFORMATION
  Report Type: Spontaneous
  Country: NL (occurrence: NL)
  Receive Date: 20190113
  Receipt Date: 20190113
  Transmission Date: 20190417
  Serious: Yes (Death)
  Sender: FDA-Public Use
  Company Number: NL-TEVA-2019-NL-998268

PATIENT
  Age: 49 Year
  Sex: Male
  Weight: 70 kg

DRUGS (4)
  1. VENLAFAXINE CAPSULE MET GEREGULEERDE AFGIFTE, 37,5 MG (MILLIGRAM) [Suspect]
     Active Substance: VENLAFAXINE HYDROCHLORIDE
     Indication: ANXIETY
     Dosage: 1X
     Dates: start: 20050101
  2. TEMAZEPAM. [Concomitant]
     Active Substance: TEMAZEPAM
  3. OXAZEPAM. [Concomitant]
     Active Substance: OXAZEPAM
  4. ZOPICLON [Concomitant]
     Active Substance: ZOPICLONE

REACTIONS (1)
  - Akathisia [Fatal]

NARRATIVE: CASE EVENT DATE: 20170626
